FAERS Safety Report 4363371-0 (Version None)
Quarter: 2004Q2

REPORT INFORMATION
  Report Type: 
  Country: None (occurrence: None)
  Receive Date: 20040518
  Receipt Date: 20040506
  Transmission Date: 20050107
  Serious: Yes (Other)
  Sender: FDA-Public Use
  Company Number: 2004212754BR

PATIENT
  Age: 26 Year
  Sex: Female

DRUGS (2)
  1. DEPO-PROVERA [Suspect]
     Indication: CONTRACEPTION
     Dosage: 150 MG/12WKS 1ST INJECT., INTRAMUSCULAR
     Route: 030
     Dates: start: 20030101, end: 20030101
  2. DEPO-PROVERA [Suspect]
     Indication: CONTRACEPTION
     Dosage: 150 MG/12WKS 1ST INJECT., INTRAMUSCULAR
     Route: 030
     Dates: start: 20040506, end: 20040506

REACTIONS (5)
  - ABASIA [None]
  - ERYTHEMA [None]
  - MASS [None]
  - PAIN IN EXTREMITY [None]
  - PRURITUS [None]
